FAERS Safety Report 7829790-2 (Version None)
Quarter: 2011Q4

REPORT INFORMATION
  Report Type: 
  Country: None (occurrence: None)
  Receive Date: 20111020
  Receipt Date: 20111020
  Transmission Date: 20120403
  Serious: Yes (Other)
  Sender: FDA-Public Use
  Company Number: None

PATIENT
  Age: 59 Year
  Sex: Female
  Weight: 90.7194 kg

DRUGS (1)
  1. PROLIA [Suspect]
     Indication: OSTEOPOROSIS
     Dosage: INJECTION EVERY 6 MOS.
     Dates: start: 20110718

REACTIONS (11)
  - MUSCLE SPASMS [None]
  - VISION BLURRED [None]
  - DIZZINESS [None]
  - MYALGIA [None]
  - VOMITING [None]
  - WEIGHT INCREASED [None]
  - CONTUSION [None]
  - URINARY TRACT INFECTION [None]
  - CULTURE [None]
  - HEADACHE [None]
  - SYNCOPE [None]
